FAERS Safety Report 8155062-5 (Version None)
Quarter: 2012Q1

REPORT INFORMATION
  Report Type: 
  Country: None (occurrence: None)
  Receive Date: 20120221
  Receipt Date: 20120217
  Transmission Date: 20120608
  Serious: No
  Sender: FDA-Public Use
  Company Number: US-PFIZER INC-2012043590

PATIENT
  Sex: Female
  Weight: 77.1 kg

DRUGS (1)
  1. PRISTIQ [Suspect]
     Indication: DEPRESSION
     Dosage: 50 MG, 1X/DAY
     Route: 048
     Dates: start: 20100101, end: 20120215

REACTIONS (4)
  - NAUSEA [None]
  - MALAISE [None]
  - DIZZINESS [None]
  - HEAD DISCOMFORT [None]
